FAERS Safety Report 12012836 (Version 1)
Quarter: 2016Q1

REPORT INFORMATION
  Report Type: Spontaneous
  Country: None (occurrence: FR)
  Receive Date: 20160205
  Receipt Date: 20160205
  Transmission Date: 20160526
  Serious: Yes (Other)
  Sender: FDA-Public Use
  Company Number: FR-MEDAC PHARMA, INC.-1047386

PATIENT
  Sex: Female
  Weight: 65 kg

DRUGS (5)
  1. OMEPRAZOLE. [Concomitant]
     Active Substance: OMEPRAZOLE
  2. METOJECT [Suspect]
     Active Substance: METHOTREXATE SODIUM
     Indication: RHEUMATOID ARTHRITIS
  3. PROZAC [Concomitant]
     Active Substance: FLUOXETINE HYDROCHLORIDE
  4. NOCTAMIDE [Concomitant]
     Active Substance: LORMETAZEPAM
  5. LEXOMIL [Concomitant]
     Active Substance: BROMAZEPAM

REACTIONS (4)
  - Palpitations [Unknown]
  - Negative thoughts [Unknown]
  - Suicidal ideation [Unknown]
  - Somnolence [Unknown]
